FAERS Safety Report 16515269 (Version 1)
Quarter: 2019Q3

REPORT INFORMATION
  Report Type: Spontaneous
  Country: US (occurrence: US)
  Receive Date: 20190521
  Receipt Date: 20190521
  Transmission Date: 20191004
  Serious: Yes (Hospitalization)
  Sender: FDA-Public Use
  Company Number: None

PATIENT
  Age: 66 Year
  Sex: Female
  Weight: 56.7 kg

DRUGS (1)
  1. APRESOLINE HYDROCHLORIDE [Suspect]
     Active Substance: HYDRALAZINE HYDROCHLORIDE
     Indication: BLOOD PRESSURE MANAGEMENT
     Dosage: ?          OTHER ROUTE:INJECTION?
     Dates: start: 20190517, end: 20190517

REACTIONS (7)
  - Nausea [None]
  - Tremor [None]
  - Speech disorder [None]
  - Dizziness [None]
  - Loss of consciousness [None]
  - Chest discomfort [None]
  - Vomiting [None]

NARRATIVE: CASE EVENT DATE: 20190517
